FAERS Safety Report 9781749 (Version 2)
Quarter: 2014Q2

REPORT INFORMATION
  Report Type: Spontaneous
  Country: US (occurrence: US)
  Receive Date: 20131225
  Receipt Date: 20140416
  Transmission Date: 20141212
  Serious: No
  Sender: FDA-Public Use
  Company Number: US-009507513-1312USA009155

PATIENT
  Sex: Female
  Weight: 66.2 kg

DRUGS (1)
  1. ASMANEX TWISTHALER [Suspect]
     Indication: ASTHMA
     Dosage: 1 PUF,220 MG BID
     Route: 055
     Dates: start: 2013, end: 2013

REACTIONS (8)
  - Nausea [Recovered/Resolved]
  - Drug dose omission [Unknown]
  - Product contamination microbial [Unknown]
  - Product odour abnormal [Unknown]
  - Wrong drug administered [Unknown]
  - Product taste abnormal [Unknown]
  - Cough [Recovered/Resolved]
  - Dysgeusia [Recovered/Resolved]
